FAERS Safety Report 4929176-4 (Version None)
Quarter: 2006Q1

REPORT INFORMATION
  Report Type: 
  Country: None (occurrence: None)
  Receive Date: 20060228
  Receipt Date: 20060228
  Transmission Date: 20060701
  Serious: Yes (Life-Threatening, Other)
  Sender: FDA-Public Use
  Company Number: None

PATIENT
  Sex: Male
  Weight: 68.0396 kg

DRUGS (5)
  1. MS CONTIN [Suspect]
     Indication: BACK PAIN
     Dosage: 60 MG PO TID
     Route: 048
     Dates: start: 20030630
  2. MS CONTIN [Suspect]
     Indication: PAIN IN EXTREMITY
     Dosage: 60 MG PO TID
     Route: 048
     Dates: start: 20030630
  3. ZONEGRAN [Concomitant]
  4. MSIR [Concomitant]
  5. VALIUM [Concomitant]

REACTIONS (4)
  - DRUG EFFECT DECREASED [None]
  - INADEQUATE ANALGESIA [None]
  - SOMNOLENCE [None]
  - THERAPEUTIC RESPONSE UNEXPECTED WITH DRUG SUBSTITUTION [None]
